FAERS Safety Report 9524008 (Version 1)
Quarter: 2013Q1

REPORT INFORMATION
  Report Type: Spontaneous
  Country: US (occurrence: None)
  Receive Date: 20130313
  Receipt Date: 20130313
  Transmission Date: 20140127
  Serious: No
  Sender: FDA-Public Use
  Company Number: 1000039768

PATIENT
  Age: 55 Year
  Sex: Male

DRUGS (11)
  1. SAVELLA (MILNACIPRAN HYDROCHLORIDE) (12.5 MILLIGRAM, TABLETS) [Suspect]
     Indication: FIBROMYALGIA
     Dosage: 12.5MG (12.5 MG, 1 IN 1 D), ORAL
     Route: 048
     Dates: start: 201208, end: 201208
  2. XANAX (ALPRAZOLM) (ALPRAZOLAM) [Concomitant]
  3. OXYCONTIN (OXYCODONE) [Concomitant]
  4. CLONOPIN (CLONAZEPAM) (CLONAZEPAM) [Concomitant]
  5. FELXERIL (CYCLOBENZAPRINE) (CYCLOBENZAPRINE) [Concomitant]
  6. LIDODEM (LIDOCAINE) (LIDOCAINE) [Concomitant]
  7. NEXIUM (ESOMEPRAZOLE ) (ESOMEPRAZOLE) [Concomitant]
  8. CELEBREX (CELECOXIB) (CELECOXIB) [Concomitant]
  9. AMBIEN (ZOLPIDEM TARTRATE) (ZOLPIDEM TARTRATE) [Concomitant]
  10. FLOMAX (TAMSULOSIN) (TAMSULOSIN) [Concomitant]
  11. METHLPREDNISOLONE (METHYLPREDNISOLONE) (METHLPREDNISOLONE) [Concomitant]

REACTIONS (1)
  - Tachycardia [None]
